FAERS Safety Report 17575585 (Version 1)
Quarter: 2020Q1

REPORT INFORMATION
  Report Type: Spontaneous
  Country: US (occurrence: US)
  Receive Date: 20200324
  Receipt Date: 20200324
  Transmission Date: 20200409
  Serious: Yes (Death)
  Sender: FDA-Public Use
  Company Number: US-TEIKOKU PHARMA USA, INC.-US-2020TEI000074

PATIENT
  Age: 61 Year
  Sex: Male

DRUGS (13)
  1. PAZOPANIB [Suspect]
     Active Substance: PAZOPANIB
     Dosage: DOSE LEVEL 3A: 600 MG, QD
     Route: 048
  2. DOCETAXEL INJECTION (NON-ALCOHOL FORMULA) [Suspect]
     Active Substance: DOCETAXEL
     Dosage: DOSE LEVEL 1A: 60 MG/M2, Q3 WEEKS
     Route: 042
  3. NEULASTA [Suspect]
     Active Substance: PEGFILGRASTIM
     Indication: HORMONE-REFRACTORY PROSTATE CANCER
     Dosage: UNK
     Route: 065
  4. DOCETAXEL INJECTION (NON-ALCOHOL FORMULA) [Suspect]
     Active Substance: DOCETAXEL
     Dosage: DOSE LEVEL 2A: 75 MG/M2, Q3 WEEKS
     Route: 042
  5. PREDNISONE. [Suspect]
     Active Substance: PREDNISONE
     Dosage: DOSE LEVEL 3A: 5 MG, BID
     Route: 065
  6. PAZOPANIB [Suspect]
     Active Substance: PAZOPANIB
     Indication: HORMONE-REFRACTORY PROSTATE CANCER
     Dosage: DOSE LEVEL 4A: 800 MG, QD; HELD AT CYCLE 9
     Route: 048
  7. DOCETAXEL INJECTION (NON-ALCOHOL FORMULA) [Suspect]
     Active Substance: DOCETAXEL
     Dosage: DOSE LEVEL 3A: 75 MG/M2,Q3 WEEKS
     Route: 042
  8. PREDNISONE. [Suspect]
     Active Substance: PREDNISONE
     Dosage: DOSE LEVEL 1A: 5 MG, BID
     Route: 065
  9. PAZOPANIB [Suspect]
     Active Substance: PAZOPANIB
     Dosage: DOSE LEVEL 2A: 400 MG, QD
     Route: 048
  10. PAZOPANIB [Suspect]
     Active Substance: PAZOPANIB
     Dosage: DOSE LEVEL 1A: 400 MG, QD
     Route: 048
  11. PREDNISONE. [Suspect]
     Active Substance: PREDNISONE
     Indication: HORMONE-REFRACTORY PROSTATE CANCER
     Dosage: DOSE LEVEL 4A: 5 MG, BID
     Route: 065
  12. DOCETAXEL INJECTION (NON-ALCOHOL FORMULA) [Suspect]
     Active Substance: DOCETAXEL
     Indication: HORMONE-REFRACTORY PROSTATE CANCER
     Dosage: DOSE LEVEL 4A: 75 MG/M2, Q 3 WEEKS
     Route: 042
  13. PREDNISONE. [Suspect]
     Active Substance: PREDNISONE
     Dosage: DOSE LEVEL 2A: 5 MG, BID
     Route: 065

REACTIONS (1)
  - Haemorrhage intracranial [Fatal]
